FAERS Safety Report 7129976-9 (Version None)
Quarter: 2010Q4

REPORT INFORMATION
  Report Type: 
  Country: None (occurrence: None)
  Receive Date: 20101130
  Receipt Date: 20101110
  Transmission Date: 20110411
  Serious: Yes (Other)
  Sender: FDA-Public Use
  Company Number: GB-AMGEN-GBRCT2010005043

PATIENT

DRUGS (2)
  1. ETANERCEPT [Suspect]
     Indication: PRODUCT USED FOR UNKNOWN INDICATION
     Dosage: UNK
     Dates: start: 20030513
  2. METHOTREXATE [Concomitant]
     Dosage: UNK
     Dates: start: 20050824

REACTIONS (1)
  - RECTOSIGMOID CANCER [None]
